FAERS Safety Report 8232846-6 (Version None)
Quarter: 2012Q1

REPORT INFORMATION
  Report Type: 
  Country: None (occurrence: None)
  Receive Date: 20120323
  Receipt Date: 20120313
  Transmission Date: 20120608
  Serious: Yes (Other)
  Sender: FDA-Public Use
  Company Number: US-ASTRAZENECA-2012SE12307

PATIENT
  Age: 45 Year
  Sex: Female

DRUGS (2)
  1. OMEPRAZOLE [Concomitant]
  2. NEXIUM [Suspect]
     Route: 048

REACTIONS (7)
  - HEPATIC STEATOSIS [None]
  - MULTIPLE SCLEROSIS [None]
  - HERNIA [None]
  - MONOPLEGIA [None]
  - ULCER [None]
  - CEREBROVASCULAR ACCIDENT [None]
  - ADVERSE EVENT [None]
